FAERS Safety Report 12865678 (Version 1)
Quarter: 2016Q4

REPORT INFORMATION
  Report Type: Spontaneous
  Country: US (occurrence: US)
  Receive Date: 20161020
  Receipt Date: 20161020
  Transmission Date: 20170207
  Serious: Yes (Other)
  Sender: FDA-Public Use
  Company Number: US-AMGEN-USASP2016142614

PATIENT
  Sex: Female

DRUGS (7)
  1. PROLIA [Suspect]
     Active Substance: DENOSUMAB
     Indication: OSTEOPOROSIS
     Dosage: 60 MG, Q6MO
     Route: 058
  2. ASACOL [Concomitant]
     Active Substance: MESALAMINE
  3. AZASAN [Concomitant]
     Active Substance: AZATHIOPRINE
  4. NARATRIPTAN [Concomitant]
     Active Substance: NARATRIPTAN HYDROCHLORIDE
     Indication: MIGRAINE
  5. SYNTHROID [Concomitant]
     Active Substance: LEVOTHYROXINE SODIUM
  6. CANTIL [Concomitant]
     Active Substance: MEPENZOLATE BROMIDE
  7. ESTRACE [Concomitant]
     Active Substance: ESTRADIOL

REACTIONS (1)
  - Exostosis of jaw [Not Recovered/Not Resolved]
